FAERS Safety Report 6071388-3 (Version None)
Quarter: 2009Q1

REPORT INFORMATION
  Report Type: 
  Country: None (occurrence: None)
  Receive Date: 20090204
  Receipt Date: 20090127
  Transmission Date: 20090719
  Serious: Yes (Death)
  Sender: FDA-Public Use
  Company Number: GXKR2009US01186

PATIENT
  Age: 58 Year
  Sex: Male

DRUGS (1)
  1. BUPROPION HCL [Suspect]

REACTIONS (2)
  - HEPATIC FAILURE [None]
  - HEPATOCELLULAR INJURY [None]
